FAERS Safety Report 5277034-0 (Version None)
Quarter: 2007Q1

REPORT INFORMATION
  Report Type: 
  Country: None (occurrence: None)
  Receive Date: 20070327
  Receipt Date: 20070209
  Transmission Date: 20070707
  Serious: No
  Sender: FDA-Public Use
  Company Number: US-BRISTOL-MYERS SQUIBB COMPANY-13674734

PATIENT
  Age: 61 Year
  Sex: Male
  Weight: 93 kg

DRUGS (5)
  1. ORENCIA [Suspect]
     Indication: RHEUMATOID ARTHRITIS
     Route: 042
     Dates: start: 20060801
  2. MILK THISTLE [Concomitant]
  3. PRILOSEC [Concomitant]
  4. PREDNISONE [Concomitant]
  5. ASPIRIN [Concomitant]

REACTIONS (2)
  - DIZZINESS [None]
  - HEPATIC STEATOSIS [None]
